FAERS Safety Report 4967399-9 (Version None)
Quarter: 2006Q2

REPORT INFORMATION
  Report Type: 
  Country: None (occurrence: None)
  Receive Date: 20060410
  Receipt Date: 20060403
  Transmission Date: 20061013
  Serious: Yes (Other)
  Sender: FDA-Public Use
  Company Number: US-BRISTOL-MYERS SQUIBB COMPANY-13335286

PATIENT
  Age: 43 Year
  Sex: Female
  Weight: 80 kg

DRUGS (4)
  1. ERBITUX [Suspect]
     Indication: SQUAMOUS CELL CARCINOMA
     Dosage: INITIATED 20-MAR-05.START DATE OF COURSE 12 IS 14-FEB-06, LASTON 28-MAR-TOTAL COURSE DOSE 495 MG.
     Route: 042
     Dates: start: 20060328, end: 20060328
  2. CARBOPLATIN [Suspect]
     Indication: SQUAMOUS CELL CARCINOMA
     Dosage: DOSE AUC 1 OVER 15 MINUTES EVERY WEEK.INITIATED 20-DEC-05. START DATE OF COURSE 12- 14-FEB-2006.
     Route: 042
  3. PACLITAXEL [Suspect]
     Indication: SQUAMOUS CELL CARCINOMA
     Dosage: INITIATED 20-DEC-05. 30 MG/M2 OVER 1 HOUR EVERY WEEK. START DATE OF COURSE 12- 14-FEB-2006.
     Route: 042
  4. RADIATION THERAPY [Suspect]
     Indication: SQUAMOUS CELL CARCINOMA
     Dosage: EXTERNAL BEAM, 3D.TOTAL DOSE TO DATE 5800 CGY.LAST TREATMENT 31-MAR-06.29 FRACTIONS,46 ELAPSED DAYS.
     Dates: start: 20060331, end: 20060331

REACTIONS (2)
  - RADIATION SKIN INJURY [None]
  - THERMAL BURN [None]
